FAERS Safety Report 8514754-6 (Version None)
Quarter: 2012Q3

REPORT INFORMATION
  Report Type: 
  Country: None (occurrence: None)
  Receive Date: 20120717
  Receipt Date: 20120522
  Transmission Date: 20120928
  Serious: No
  Sender: FDA-Public Use
  Company Number: US-COVIDIEN/TYCO HEALTHCARE/MALLINCKRODT-T201201928

PATIENT
  Sex: Male
  Weight: 63.039 kg

DRUGS (1)
  1. MORPHINE [Suspect]
     Indication: NEUROPATHY PERIPHERAL
     Dosage: 15 MG Q 8 HOURS
     Dates: start: 20120521, end: 20120522

REACTIONS (2)
  - PRURITUS [None]
  - RASH PAPULAR [None]
